FAERS Safety Report 6385461-3 (Version None)
Quarter: 2009Q4

REPORT INFORMATION
  Report Type: 
  Country: None (occurrence: None)
  Receive Date: 20091002
  Receipt Date: 20080909
  Transmission Date: 20100525
  Serious: No
  Sender: FDA-Public Use
  Company Number: US-ASTRAZENECA-2008UW18619

PATIENT
  Age: 56 Year
  Sex: Female
  Weight: 79.4 kg

DRUGS (12)
  1. ARIMIDEX [Suspect]
     Indication: BREAST CANCER FEMALE
     Route: 048
  2. ARIMIDEX [Suspect]
     Indication: MASTECTOMY
     Route: 048
  3. PAXIL [Concomitant]
  4. MAXZIDE [Concomitant]
     Dosage: 25MG 1/2TABLET
  5. SYNTHROID [Concomitant]
  6. LOPRESSOR [Concomitant]
     Dosage: 50MG
  7. ASPIRIN [Concomitant]
  8. ZETIA [Concomitant]
     Dosage: 10MG
  9. TRICOR [Concomitant]
     Dosage: 150MG
  10. VALIUM [Concomitant]
     Dosage: 5MG
  11. MULTIVITE [Concomitant]
  12. DARVOCET [Concomitant]
     Dosage: PRN

REACTIONS (2)
  - HOT FLUSH [None]
  - HYPERHIDROSIS [None]
